FAERS Safety Report 4984174-X (Version None)
Quarter: 2006Q2

REPORT INFORMATION
  Report Type: 
  Country: None (occurrence: None)
  Receive Date: 20060425
  Receipt Date: 20060425
  Transmission Date: 20061013
  Serious: No
  Sender: FDA-Public Use
  Company Number: None

PATIENT
  Age: 53 Year
  Sex: Female
  Weight: 135.6255 kg

DRUGS (2)
  1. METFORMIN [Suspect]
     Indication: DIABETES MELLITUS
     Dosage: 2 PILLS   BID   PO
     Route: 048
     Dates: start: 20050929
  2. LISINOPRIL [Suspect]
     Indication: HYPERTENSION
     Dosage: 1 PILL   DAILY  PO
     Route: 048
     Dates: start: 20050929

REACTIONS (3)
  - DIARRHOEA [None]
  - HEADACHE [None]
  - PHARMACEUTICAL PRODUCT COMPLAINT [None]
